FAERS Safety Report 7292767-2 (Version None)
Quarter: 2011Q1

REPORT INFORMATION
  Report Type: 
  Country: None (occurrence: None)
  Receive Date: 20110215
  Receipt Date: 20110209
  Transmission Date: 20110831
  Serious: Yes (Hospitalization, Other)
  Sender: FDA-Public Use
  Company Number: US-JNJFOC-20100801514

PATIENT
  Sex: Male

DRUGS (4)
  1. CIPRO [Suspect]
     Indication: PRODUCT USED FOR UNKNOWN INDICATION
     Route: 065
  2. RHINOCORT [Suspect]
     Indication: PRODUCT USED FOR UNKNOWN INDICATION
     Route: 065
  3. LEVAQUIN [Suspect]
     Indication: DIVERTICULITIS
     Route: 048
  4. LEVAQUIN [Suspect]
     Indication: BRONCHITIS
     Route: 048

REACTIONS (3)
  - TENDON RUPTURE [None]
  - TENDONITIS [None]
  - MENISCUS LESION [None]
